FAERS Safety Report 4805998-5 (Version None)
Quarter: 2005Q4

REPORT INFORMATION
  Report Type: 
  Country: None (occurrence: None)
  Receive Date: 20051021
  Receipt Date: 20051019
  Transmission Date: 20060501
  Serious: Yes (Death, Other)
  Sender: FDA-Public Use
  Company Number: US-GLAXOSMITHKLINE-A0578795A

PATIENT
  Sex: Male

DRUGS (4)
  1. PAXIL [Suspect]
     Indication: OBSESSIVE-COMPULSIVE DISORDER
     Dosage: 40MG PER DAY
     Route: 048
  2. LIPITOR [Concomitant]
  3. COGENTIN [Concomitant]
  4. RISPERDAL [Concomitant]

REACTIONS (3)
  - DEATH [None]
  - DRUG TOXICITY [None]
  - SUDDEN DEATH [None]
